FAERS Safety Report 21536668 (Version 2)
Quarter: 2022Q4

REPORT INFORMATION
  Report Type: Spontaneous
  Country: US (occurrence: US)
  Receive Date: 20221101
  Receipt Date: 20221216
  Transmission Date: 20230112
  Serious: No
  Sender: FDA-Public Use
  Company Number: US-PFIZER INC-PV202200091316

PATIENT
  Age: 57 Year
  Sex: Female

DRUGS (1)
  1. INLYTA [Suspect]
     Active Substance: AXITINIB
     Dosage: 4 MG

REACTIONS (4)
  - Eating disorder [Unknown]
  - Palmar-plantar erythrodysaesthesia syndrome [Unknown]
  - Skin papilloma [Unknown]
  - Neoplasm progression [Unknown]
